FAERS Safety Report 26051562 (Version 1)
Quarter: 2025Q4

REPORT INFORMATION
  Report Type: Spontaneous
  Country: GB (occurrence: GB)
  Receive Date: 20251117
  Receipt Date: 20251117
  Transmission Date: 20260118
  Serious: Yes (Hospitalization, Other)
  Sender: ALEXION PHARMACEUTICALS
  Company Number: None

PATIENT
  Sex: Male
  Weight: 88 kg

DRUGS (8)
  1. DAPAGLIFLOZIN [Suspect]
     Active Substance: DAPAGLIFLOZIN
     Route: 065
  2. CALCIUM\CHOLECALCIFEROL [Concomitant]
     Active Substance: CALCIUM\CHOLECALCIFEROL
  3. VITAMIN D [Concomitant]
     Active Substance: VITAMIN D NOS
  4. FERROUS FUMARATE [Concomitant]
     Active Substance: FERROUS FUMARATE
  5. GLICLAZIDE [Concomitant]
     Active Substance: GLICLAZIDE
  6. SIMVASTATIN [Concomitant]
     Active Substance: SIMVASTATIN
  7. ALENDRONIC ACID [Concomitant]
     Active Substance: ALENDRONIC ACID
  8. METFORMIN [Concomitant]
     Active Substance: METFORMIN HYDROCHLORIDE

REACTIONS (1)
  - Blood ketone body [Recovering/Resolving]

NARRATIVE: CASE EVENT DATE: 20251106
